FAERS Safety Report 5027795-0 (Version None)
Quarter: 2006Q2

REPORT INFORMATION
  Report Type: 
  Country: None (occurrence: None)
  Receive Date: 20060614
  Receipt Date: 20060614
  Transmission Date: 20061013
  Serious: Yes (Life-Threatening, Hospitalization)
  Sender: FDA-Public Use
  Company Number: None

PATIENT
  Age: 82 Year
  Sex: Female
  Weight: 84.369 kg

DRUGS (2)
  1. METHOTREXATE [Suspect]
     Dosage: 25 MG SC WEEKLY
     Route: 058
     Dates: start: 20050316, end: 20060507
  2. REMICADE [Suspect]
     Dosage: 300MG IV Q 8 WKS
     Route: 042
     Dates: start: 20050705, end: 20060403

REACTIONS (5)
  - DYSPNOEA [None]
  - FATIGUE [None]
  - LUNG INFILTRATION [None]
  - PNEUMONITIS [None]
  - PYREXIA [None]
